FAERS Safety Report 17900758 (Version 1)
Quarter: 2020Q2

REPORT INFORMATION
  Report Type: Report from Study
  Country: DE (occurrence: DE)
  Receive Date: 20200616
  Receipt Date: 20200616
  Transmission Date: 20200714
  Serious: Yes (Hospitalization)
  Sender: FDA-Public Use
  Company Number: DE-ELI_LILLY_AND_COMPANY-DE202006003601

PATIENT
  Age: 85 Year
  Sex: Female

DRUGS (3)
  1. TERIPARATIDE [Suspect]
     Active Substance: TERIPARATIDE
     Indication: OSTEOPOROSIS
     Dosage: UNK, DAILY
     Route: 058
     Dates: start: 20190320
  2. MORPHINE [Suspect]
     Active Substance: MORPHINE
     Dosage: UNK, UNKNOWN DROPS
     Route: 065
  3. MORPHINE [Suspect]
     Active Substance: MORPHINE
     Indication: PAIN IN EXTREMITY
     Dosage: UNK, UNKNOWN TABLET
     Route: 065

REACTIONS (3)
  - Erythema [Recovered/Resolved]
  - Spinal deformity [Unknown]
  - Pain in extremity [Not Recovered/Not Resolved]
